FAERS Safety Report 6398691-1 (Version None)
Quarter: 2009Q4

REPORT INFORMATION
  Report Type: 
  Country: None (occurrence: None)
  Receive Date: 20090917
  Receipt Date: 20090909
  Transmission Date: 20100525
  Serious: Yes (Other)
  Sender: FDA-Public Use
  Company Number: THYM-1001183

PATIENT
  Age: 48 Year
  Sex: Male

DRUGS (1)
  1. THYMOGLOBULIN [Suspect]
     Indication: KIDNEY TRANSPLANT REJECTION

REACTIONS (11)
  - ARTHRALGIA [None]
  - BICYTOPENIA [None]
  - BLOOD CREATININE INCREASED [None]
  - DEMYELINATING POLYNEUROPATHY [None]
  - DYSPHAGIA [None]
  - DYSPHONIA [None]
  - GUILLAIN-BARRE SYNDROME [None]
  - HYPERSENSITIVITY [None]
  - MYALGIA [None]
  - PYREXIA [None]
  - RESPIRATORY FAILURE [None]
